FAERS Safety Report 15165360 (Version 1)
Quarter: 2018Q3

REPORT INFORMATION
  Report Type: Spontaneous
  Country: DE (occurrence: DE)
  Receive Date: 20180719
  Receipt Date: 20180719
  Transmission Date: 20181010
  Serious: Yes (Life-Threatening, Hospitalization)
  Sender: FDA-Public Use
  Company Number: DE-AUROBINDO-AUR-APL-2018-034611

PATIENT
  Age: 61 Year
  Sex: Male
  Weight: 85 kg

DRUGS (3)
  1. AMOXICILLIN?CLAVULAN ACID  FILM COATED TABLETS 875/125MG [Suspect]
     Active Substance: AMOXICILLIN\CLAVULANIC ACID
     Indication: PYREXIA
  2. AMOXICILLIN?CLAVULAN ACID FILM COATED TABLETS 875/125MG [Suspect]
     Active Substance: AMOXICILLIN\CLAVULANIC ACID
     Indication: INFECTION
     Dosage: 2X DAILY 1 FILM?COATED TABLET,1 {DF} 12
     Route: 048
     Dates: start: 20180419, end: 20180429
  3. AMOXICILLIN?CLAVULAN ACID  FILM COATED TABLETS 875/125MG [Suspect]
     Active Substance: AMOXICILLIN\CLAVULANIC ACID
     Indication: BRONCHITIS

REACTIONS (25)
  - Jaundice [Not Recovered/Not Resolved]
  - Ceruloplasmin increased [None]
  - Aspartate aminotransferase increased [None]
  - Blood bilirubin increased [None]
  - Hiatus hernia [None]
  - Liver disorder [Not Recovered/Not Resolved]
  - Gallbladder disorder [None]
  - Intussusception [None]
  - Pruritus [Unknown]
  - High density lipoprotein decreased [None]
  - Gastritis erosive [None]
  - Bilirubin conjugated increased [None]
  - Serum ferritin increased [None]
  - Alanine aminotransferase increased [None]
  - Hepatitis A antibody positive [None]
  - Gastritis [None]
  - Blood cholesterol increased [None]
  - Hepatitis B surface antibody positive [None]
  - Blood lactate dehydrogenase increased [None]
  - Blood lactic acid increased [None]
  - Diverticulum intestinal [None]
  - Gastric mucosal hypertrophy [None]
  - Blood alkaline phosphatase increased [None]
  - Gamma-glutamyltransferase increased [None]
  - Gastrooesophageal reflux disease [None]

NARRATIVE: CASE EVENT DATE: 20180513
